FAERS Safety Report 16503529 (Version 2)
Quarter: 2019Q3

REPORT INFORMATION
  Report Type: Spontaneous
  Country: US (occurrence: US)
  Receive Date: 20190701
  Receipt Date: 20190912
  Transmission Date: 20191004
  Serious: Yes (Hospitalization)
  Sender: FDA-Public Use
  Company Number: US-GW PHARMA-201906USGW2132

PATIENT

DRUGS (4)
  1. EPIDIOLEX [Suspect]
     Active Substance: CANNABIDIOL
     Indication: EPILEPSY
     Dosage: UNK
     Route: 048
     Dates: start: 20190604, end: 20190617
  2. EPIDIOLEX [Suspect]
     Active Substance: CANNABIDIOL
     Dosage: UNK (TEMPORARILY INTERRUPTED AND RESTARTED)
     Route: 048
     Dates: start: 2019
  3. EPIDIOLEX [Suspect]
     Active Substance: CANNABIDIOL
     Dosage: 130 MILLIGRAM, BID
     Route: 048
     Dates: start: 201906, end: 2019
  4. EPIDIOLEX [Suspect]
     Active Substance: CANNABIDIOL
     Dosage: 270 MILLIGRAM, BID
     Route: 048
     Dates: start: 20190618, end: 201906

REACTIONS (4)
  - Hypersomnia [Recovered/Resolved]
  - Seizure [Recovered/Resolved]
  - Pneumonia aspiration [Recovered/Resolved]
  - Depressed level of consciousness [Unknown]

NARRATIVE: CASE EVENT DATE: 201906
